FAERS Safety Report 23682001 (Version 1)
Quarter: 2024Q1

REPORT INFORMATION
  Report Type: Spontaneous
  Country: ES (occurrence: ES)
  Receive Date: 20240328
  Receipt Date: 20240328
  Transmission Date: 20240410
  Serious: Yes (Life-Threatening, Other)
  Sender: FDA-Public Use
  Company Number: ES-SA-2019SA281037

PATIENT
  Age: 58 Year
  Sex: Male

DRUGS (2)
  1. OXALIPLATIN [Suspect]
     Active Substance: OXALIPLATIN
     Indication: Rectal adenocarcinoma
     Dosage: RECEIVED 7 CHEMOTHERAPY CYCLES (OXALIPLATIN- CAPECITABINE), INFUSION
     Dates: start: 2015, end: 2015
  2. CAPECITABINE [Concomitant]
     Active Substance: CAPECITABINE
     Indication: Rectal adenocarcinoma
     Dosage: RECEIVED 7 CHEMOTHERAPY CYCLES (OXALIPLATIN- CAPECITABINE).
     Dates: end: 2015

REACTIONS (5)
  - Depressed level of consciousness [Unknown]
  - Bradycardia [Unknown]
  - Pruritus [Unknown]
  - Oxygen saturation decreased [Unknown]
  - Dyspnoea [Unknown]

NARRATIVE: CASE EVENT DATE: 20150101
